FAERS Safety Report 9558253 (Version 1)
Quarter: 2013Q3

REPORT INFORMATION
  Report Type: Spontaneous
  Country: FR (occurrence: FR)
  Receive Date: 20130926
  Receipt Date: 20130926
  Transmission Date: 20140515
  Serious: Yes (Life-Threatening, Hospitalization)
  Sender: FDA-Public Use
  Company Number: FR-JNJFOC-20130909493

PATIENT
  Age: 46 Year
  Sex: Male

DRUGS (8)
  1. RISPERDAL [Suspect]
     Indication: PRODUCT USED FOR UNKNOWN INDICATION
     Dosage: INITIATED SINCE MORE THAN 2 YEARS
     Route: 048
     Dates: end: 20110201
  2. KETEK [Suspect]
     Indication: LUNG DISORDER
     Dosage: KETEK 400 MG
     Route: 048
     Dates: start: 20110124, end: 20110201
  3. NORVIR [Concomitant]
     Route: 048
     Dates: end: 20110201
  4. TRUVADA [Concomitant]
     Route: 065
  5. REYATAZ [Concomitant]
     Route: 065
  6. VALIUM [Concomitant]
     Dosage: VALIUM 10
     Route: 065
  7. MINIRIN [Concomitant]
     Route: 065
  8. THERALENE [Concomitant]
     Dosage: 60 DROPS IN THE EVENING
     Route: 065

REACTIONS (9)
  - Psychomotor retardation [Recovered/Resolved]
  - Ocular icterus [Recovered/Resolved]
  - Pancytopenia [Recovered/Resolved]
  - Haptoglobin decreased [Recovered/Resolved]
  - Ascites [Recovered/Resolved]
  - Oedema [Recovered/Resolved]
  - Jaundice [Recovered/Resolved]
  - Hepatocellular injury [Recovered/Resolved]
  - Haemolysis [Recovered/Resolved]
